FAERS Safety Report 5797314-X (Version None)
Quarter: 2008Q2

REPORT INFORMATION
  Report Type: 
  Country: None (occurrence: None)
  Receive Date: 20080627
  Receipt Date: 20080612
  Transmission Date: 20081010
  Serious: Yes (Other)
  Sender: FDA-Public Use
  Company Number: 2008S1010303

PATIENT
  Age: 83 Year
  Sex: Female

DRUGS (11)
  1. DOXAZOSIN MESYLATE [Suspect]
     Indication: ESSENTIAL HYPERTENSION
     Dosage: 1 MG; TWICE A DAY; ORAL
     Route: 048
     Dates: start: 20080124, end: 20080415
  2. AMITRIPTYLINE HYDROCHLORIDE [Concomitant]
  3. AMLODIPINE [Concomitant]
  4. ATENOLOL [Concomitant]
  5. ATORVASTATIN CALCIUM [Concomitant]
  6. ACETAMINOPHEN W/ CODEINE [Concomitant]
  7. FUROSEMIDE [Concomitant]
  8. LORATADINE [Concomitant]
  9. MIXTARD /00634701/ [Concomitant]
  10. OMEPRAZOLE [Concomitant]
  11. RAMIPRIL [Concomitant]

REACTIONS (1)
  - HALLUCINATION, VISUAL [None]
